FAERS Safety Report 11593952 (Version 2)
Quarter: 2015Q4

REPORT INFORMATION
  Report Type: Report from Study
  Country: US (occurrence: US)
  Receive Date: 20151005
  Receipt Date: 20151009
  Transmission Date: 20160304
  Serious: Yes (Hospitalization)
  Sender: FDA-Public Use
  Company Number: US-AMGEN-USACT2015102225

PATIENT
  Age: 54 Year
  Sex: Female
  Weight: 74.8 kg

DRUGS (4)
  1. PANITUMUMAB [Suspect]
     Active Substance: PANITUMUMAB
     Indication: LUNG ADENOCARCINOMA
     Dosage: 1188 MG, UNK
     Route: 065
     Dates: start: 201302, end: 20130306
  2. ZIRCONIUM [Concomitant]
     Active Substance: ZIRCONIUM
     Dosage: UNK
     Dates: start: 201302, end: 201303
  3. TAXOL [Concomitant]
     Active Substance: PACLITAXEL
     Dosage: 555 MG, QWK
     Dates: start: 201302, end: 20130306
  4. CARBOPLATIN. [Concomitant]
     Active Substance: CARBOPLATIN
     Dosage: UNK UNK, QWK
     Dates: start: 201302, end: 20130306

REACTIONS (1)
  - Lung infection [Recovered/Resolved with Sequelae]

NARRATIVE: CASE EVENT DATE: 20130510
